FAERS Safety Report 5889781-8 (Version None)
Quarter: 2008Q3

REPORT INFORMATION
  Report Type: 
  Country: None (occurrence: None)
  Receive Date: 20080919
  Receipt Date: 20080908
  Transmission Date: 20090109
  Serious: Yes (Other)
  Sender: FDA-Public Use
  Company Number: US-ELI_LILLY_AND_COMPANY-US200809001850

PATIENT
  Sex: Female
  Weight: 87.074 kg

DRUGS (6)
  1. CYMBALTA [Suspect]
  2. LYRICA [Concomitant]
     Indication: FIBROMYALGIA
     Dosage: 50 MG, DAILY (1/D)
     Dates: start: 20070801
  3. DARVOCET [Concomitant]
     Dosage: UNK, AS NEEDED
  4. PRILOSEC [Concomitant]
  5. AMBIEN [Concomitant]
  6. FLEXERIL [Concomitant]

REACTIONS (7)
  - BRONCHITIS [None]
  - CARDIAC FAILURE CONGESTIVE [None]
  - COUGH [None]
  - DYSPNOEA [None]
  - NASOPHARYNGITIS [None]
  - OEDEMA PERIPHERAL [None]
  - WEIGHT INCREASED [None]
